FAERS Safety Report 8594664-9 (Version None)
Quarter: 2012Q3

REPORT INFORMATION
  Report Type: 
  Country: None (occurrence: None)
  Receive Date: 20120815
  Receipt Date: 20120813
  Transmission Date: 20120928
  Serious: No
  Sender: FDA-Public Use
  Company Number: US-PFIZER INC-2012197762

PATIENT
  Age: 73 Year
  Sex: Female
  Weight: 56 kg

DRUGS (4)
  1. LIPITOR [Concomitant]
     Indication: BLOOD CHOLESTEROL INCREASED
     Dosage: 20 MG, DAILY
  2. IBUPROFEN [Concomitant]
     Indication: ARTHRALGIA
     Dosage: 200 MG, 3X/DAY
  3. FLECTOR [Suspect]
     Indication: ARTHRITIS
     Dosage: UNK, DAILY
     Dates: start: 20120314, end: 20120806
  4. PRESERVISION EYE VITAMIN [Concomitant]
     Indication: MACULAR DEGENERATION
     Dosage: UNK, 2X/DAY
     Route: 048

REACTIONS (1)
  - APPLICATION SITE BLEEDING [None]
